FAERS Safety Report 16710852 (Version 2)
Quarter: 2019Q4

REPORT INFORMATION
  Report Type: Report from Study
  Country: BR (occurrence: BR)
  Receive Date: 20190816
  Receipt Date: 20191029
  Transmission Date: 20200122
  Serious: Yes (Other)
  Sender: FDA-Public Use
  Company Number: BR-ROCHE-2377255

PATIENT
  Age: 78 Year
  Sex: Male
  Weight: 79 kg

DRUGS (6)
  1. BLINDED ATEZOLIZUMAB [Suspect]
     Active Substance: ATEZOLIZUMAB
     Indication: METASTATIC MALIGNANT MELANOMA
     Dosage: DATE OF MOST RECENT DOSE OF BLINDED ATEZOLIZUMAB PRIOR TO EVENT ONSET: 06/MAR/2018
     Route: 042
     Dates: start: 20180306
  2. VEMURAFENIB. [Suspect]
     Active Substance: VEMURAFENIB
     Indication: METASTATIC MALIGNANT MELANOMA
     Dosage: (FOUR TABLETS)?DATE OF MOST RECENT DOSE (4 TABLETS) OF VEMURAFENIB PRIOR TO EVENT ONSET: 23/JUL/2019
     Route: 048
     Dates: start: 20180130
  3. BETAMETASON [Concomitant]
     Indication: DERMATITIS ACNEIFORM
     Dosage: 0.1 OTHER
     Route: 061
     Dates: start: 20190107
  4. COBIMETINIB. [Suspect]
     Active Substance: COBIMETINIB
     Indication: METASTATIC MALIGNANT MELANOMA
     Dosage: (THREE, 20 MG TABLETS)?DATE OF MOST RECENT DOSE 20 MG OF COBIMETINIB PRIOR TO EVENT ONSET: 23/JUL/20
     Route: 048
     Dates: start: 20180130
  5. HYDROCHLOROTHIAZIDE. [Concomitant]
     Active Substance: HYDROCHLOROTHIAZIDE
     Indication: HYPERTENSION
     Route: 048
     Dates: start: 2013
  6. ATENOLOL. [Concomitant]
     Active Substance: ATENOLOL
     Indication: HYPERTENSION
     Route: 048
     Dates: start: 2006

REACTIONS (1)
  - Squamous cell carcinoma [Recovered/Resolved]

NARRATIVE: CASE EVENT DATE: 20190723
